FAERS Safety Report 10403740 (Version 1)
Quarter: 2014Q3

REPORT INFORMATION
  Report Type: Spontaneous
  Country: US (occurrence: US)
  Receive Date: 20140822
  Receipt Date: 20140822
  Transmission Date: 20150326
  Serious: No
  Sender: FDA-Public Use
  Company Number: US-NOVEN-14US009562

PATIENT
  Sex: Female

DRUGS (3)
  1. MINIVELLE [Suspect]
     Active Substance: ESTRADIOL
     Indication: NIGHT SWEATS
     Dosage: 0.0375 MG, UNK
     Route: 062
     Dates: start: 201401
  2. MINIVELLE [Suspect]
     Active Substance: ESTRADIOL
     Indication: MOOD ALTERED
  3. MINIVELLE [Suspect]
     Active Substance: ESTRADIOL
     Indication: SLEEP DISORDER

REACTIONS (2)
  - No adverse event [Recovered/Resolved]
  - Drug dose omission [Unknown]

NARRATIVE: CASE EVENT DATE: 2014
